FAERS Safety Report 5409687-8 (Version None)
Quarter: 2007Q3

REPORT INFORMATION
  Report Type: 
  Country: None (occurrence: None)
  Receive Date: 20070809
  Receipt Date: 20070731
  Transmission Date: 20080115
  Serious: Yes (Hospitalization)
  Sender: FDA-Public Use
  Company Number: MX-ELI_LILLY_AND_COMPANY-MX200707002142

PATIENT
  Age: 78 Year
  Sex: Female
  Weight: 52 kg

DRUGS (5)
  1. FORTEO [Suspect]
     Indication: OSTEOPOROSIS
     Dosage: 20 UG, UNKNOWN
     Route: 058
     Dates: start: 20070518, end: 20070703
  2. TELMISARTAN [Concomitant]
     Indication: BLOOD PRESSURE
     Dosage: 40 MG, DAILY (1/D)
     Route: 048
  3. EUTIROX [Concomitant]
     Indication: THYROID DISORDER
     Dosage: 50 UG, DAILY (1/D)
     Route: 048
  4. ALTRULINE [Concomitant]
     Indication: DEPRESSION
     Dosage: UNK UNK, DAILY (1/D)
     Route: 048
  5. NOOTROPIL [Concomitant]
     Indication: NERVOUS SYSTEM DISORDER
     Dosage: UNK UNK, DAILY (1/D)
     Route: 048

REACTIONS (2)
  - ANXIETY [None]
  - GASTROINTESTINAL HAEMORRHAGE [None]
